FAERS Safety Report 6431697-2 (Version None)
Quarter: 2009Q4

REPORT INFORMATION
  Report Type: 
  Country: None (occurrence: None)
  Receive Date: 20091103
  Receipt Date: 20091019
  Transmission Date: 20100525
  Serious: Yes (Hospitalization)
  Sender: FDA-Public Use
  Company Number: 02100-JPN-05-0383

PATIENT
  Age: 70 Year
  Sex: Male
  Weight: 58.4 kg

DRUGS (5)
  1. PLETAL [Suspect]
     Indication: CEREBRAL INFARCTION
     Dosage: 100 MG, BID ORAL
     Route: 048
     Dates: start: 20050329, end: 20050819
  2. LIPITOR [Concomitant]
  3. CANDESARTAN CILEXETIL [Concomitant]
  4. ALLOPURINOL [Concomitant]
  5. KARYUNI (PIRENOXINE) [Concomitant]

REACTIONS (2)
  - CONVULSION [None]
  - VISUAL FIELD DEFECT [None]
